FAERS Safety Report 23677564 (Version 2)
Quarter: 2024Q2

REPORT INFORMATION
  Report Type: Spontaneous
  Country: US (occurrence: US)
  Receive Date: 20240327
  Receipt Date: 20240610
  Transmission Date: 20240716
  Serious: No
  Sender: FDA-Public Use
  Company Number: US-PFIZER INC-202400069720

PATIENT
  Age: 18 Year
  Sex: Male

DRUGS (2)
  1. BICILLIN L-A [Suspect]
     Active Substance: PENICILLIN G BENZATHINE
     Indication: Rheumatic fever
     Dosage: 2 DIFFERENT SYRINGES OF 1 ML IN EACH AND ADMINISTERED IN VENTROGLUTEAL SITE
  2. AMOXICILLIN [Concomitant]
     Active Substance: AMOXICILLIN
     Dosage: UNK
     Route: 048

REACTIONS (1)
  - Product preparation issue [Unknown]
